FAERS Safety Report 6804597-3 (Version None)
Quarter: 2010Q2

REPORT INFORMATION
  Report Type: 
  Country: None (occurrence: None)
  Receive Date: 20100628
  Receipt Date: 20070514
  Transmission Date: 20101027
  Serious: No
  Sender: FDA-Public Use
  Company Number: US-PFIZER INC-2007021113

PATIENT
  Sex: Male
  Weight: 75.75 kg

DRUGS (3)
  1. GEODON [Suspect]
     Indication: SCHIZOAFFECTIVE DISORDER
     Route: 048
  2. TEGRETOL [Concomitant]
  3. SEROQUEL [Concomitant]

REACTIONS (2)
  - ADVERSE DRUG REACTION [None]
  - BLADDER DISORDER [None]
